FAERS Safety Report 5987980-8 (Version None)
Quarter: 2008Q4

REPORT INFORMATION
  Report Type: 
  Country: None (occurrence: None)
  Receive Date: 20081210
  Receipt Date: 20080415
  Transmission Date: 20090506
  Serious: No
  Sender: FDA-Public Use
  Company Number: US-AMGEN-KDL274685

PATIENT
  Sex: Male

DRUGS (2)
  1. ENBREL [Suspect]
     Indication: PSORIASIS
     Route: 058
     Dates: start: 20051015
  2. SORIATANE [Concomitant]
     Dates: start: 20070415

REACTIONS (2)
  - CORNEAL DISORDER [None]
  - VISION BLURRED [None]
